FAERS Safety Report 23982400 (Version 1)
Quarter: 2024Q2

REPORT INFORMATION
  Report Type: Spontaneous
  Country: CN (occurrence: CN)
  Receive Date: 20240617
  Receipt Date: 20240617
  Transmission Date: 20240715
  Serious: Yes (Other)
  Sender: FDA-Public Use
  Company Number: CN-002147023-NVSC2024CN126117

PATIENT
  Age: 66 Year
  Sex: Male
  Weight: 143 kg

DRUGS (1)
  1. CYCLOSPORINE [Suspect]
     Active Substance: CYCLOSPORINE
     Indication: Nephrotic syndrome
     Dosage: 150 MG, BID
     Route: 048
     Dates: start: 20240524, end: 20240608

REACTIONS (7)
  - Retinopathy hypertensive [Unknown]
  - Rash [Recovering/Resolving]
  - Nausea [Recovering/Resolving]
  - Hypoproteinaemia [Unknown]
  - Type IIb hyperlipidaemia [Unknown]
  - Hypertension [Unknown]
  - Hyperuricaemia [Unknown]

NARRATIVE: CASE EVENT DATE: 20240606
